FAERS Safety Report 15164410 (Version 2)
Quarter: 2018Q4

REPORT INFORMATION
  Report Type: Spontaneous
  Country: US (occurrence: US)
  Receive Date: 20180719
  Receipt Date: 20181109
  Transmission Date: 20190204
  Serious: Yes (Hospitalization)
  Sender: FDA-Public Use
  Company Number: US-SHIRE-US201826339

PATIENT
  Age: 65 Year
  Sex: Female

DRUGS (1)
  1. NATPARA (PARATHYROID HORMONE) [Suspect]
     Active Substance: PARATHYROID HORMONE
     Indication: HYPOPARATHYROIDISM
     Dosage: 25 ?G, 1X/DAY:QD
     Route: 058
     Dates: start: 20151028

REACTIONS (4)
  - Blood calcium decreased [Recovered/Resolved]
  - Abdominal pain upper [Recovered/Resolved]
  - Product storage error [Unknown]
  - Inappropriate schedule of product administration [Recovered/Resolved]

NARRATIVE: CASE EVENT DATE: 20180701
